FAERS Safety Report 6997122 (Version 9)
Quarter: 2012Q4

REPORT INFORMATION
  Report Type: 
  Country: CA (occurrence: CA)
  Receive Date: 20090518
  Receipt Date: 20121111
  Transmission Date: 20130627
  Serious: Yes (Death, Other)
  Sender: FDA-Public Use
  Company Number: PHHY2009CA18308

PATIENT
  Sex: Female

DRUGS (2)
  1. SANDOSTATIN LAR [Suspect]
     Indication: METASTATIC CARCINOID TUMOUR
     Dosage: 40 mg, every 4 weeks
     Route: 030
     Dates: start: 20071222, end: 20100212
  2. CODEINE [Concomitant]
     Dosage: 50 mg

REACTIONS (29)
  - Death [Fatal]
  - Cystitis [Unknown]
  - Oedema peripheral [Unknown]
  - Malignant neoplasm progression [Unknown]
  - Lymphadenopathy [Unknown]
  - Gastrointestinal disorder [Unknown]
  - Abdominal distension [Unknown]
  - Fluid retention [Unknown]
  - Asthenia [Unknown]
  - Nausea [Recovering/Resolving]
  - Discomfort [Unknown]
  - Hepatic pain [Unknown]
  - Fatigue [Unknown]
  - Hepatic failure [Unknown]
  - Abdominal pain [Unknown]
  - Diarrhoea [Recovering/Resolving]
  - Dehydration [Unknown]
  - Coccydynia [Unknown]
  - Swelling face [Unknown]
  - Malaise [Unknown]
  - Back pain [Unknown]
  - Pruritus [Unknown]
  - Vitamin B12 decreased [Unknown]
  - Flushing [Recovering/Resolving]
  - Dysgeusia [Unknown]
  - Hypoglycaemia [Unknown]
  - Flatulence [Unknown]
  - Alopecia [Not Recovered/Not Resolved]
  - Hyperglycaemia [Unknown]
